FAERS Safety Report 6569116-8 (Version None)
Quarter: 2010Q1

REPORT INFORMATION
  Report Type: 
  Country: None (occurrence: None)
  Receive Date: 20100203
  Receipt Date: 20100125
  Transmission Date: 20100710
  Serious: Yes (Hospitalization, Other)
  Sender: FDA-Public Use
  Company Number: BE-ABBOTT-08P-013-0480352-00

PATIENT
  Sex: Male

DRUGS (4)
  1. HUMIRA [Suspect]
     Indication: PSORIASIS
     Dates: start: 20080626, end: 20080926
  2. FOSAVANCE [Concomitant]
     Indication: OSTEOPOROSIS
  3. CALCIUM CARBONATE [Concomitant]
     Indication: OSTEOPOROSIS
  4. LORMETAZEPAM [Concomitant]
     Indication: DRUG USE FOR UNKNOWN INDICATION

REACTIONS (8)
  - ATRIAL FIBRILLATION [None]
  - DERMATITIS EXFOLIATIVE [None]
  - DIARRHOEA [None]
  - GENERAL PHYSICAL HEALTH DETERIORATION [None]
  - HEPATIC LESION [None]
  - LUNG DISORDER [None]
  - LYMPHADENOPATHY [None]
  - PSORIASIS [None]
